FAERS Safety Report 5485097-2 (Version None)
Quarter: 2007Q4

REPORT INFORMATION
  Report Type: 
  Country: None (occurrence: None)
  Receive Date: 20071015
  Receipt Date: 20071008
  Transmission Date: 20080405
  Serious: Yes (Death, Life-Threatening, Hospitalization)
  Sender: FDA-Public Use
  Company Number: NL-JNJFOC-20070302265

PATIENT
  Sex: Male

DRUGS (6)
  1. TMC114 [Suspect]
     Route: 048
  2. TMC114 [Suspect]
     Indication: HIV INFECTION
     Route: 048
  3. RITONAVIR [Suspect]
     Indication: HIV INFECTION
     Route: 048
  4. EPIVIR [Concomitant]
     Indication: HIV INFECTION
     Route: 048
  5. PEGINTERFERON ALFA-2B [Concomitant]
     Indication: HEPATITIS C
     Route: 065
  6. RIBAVIRIN [Concomitant]
     Indication: HEPATITIS C
     Route: 065

REACTIONS (5)
  - HEPATIC FAILURE [None]
  - HEPATITIS [None]
  - HYDRONEPHROSIS [None]
  - NEPHROLITHIASIS [None]
  - RENAL FAILURE [None]
